FAERS Safety Report 5370203-0 (Version None)
Quarter: 2007Q2

REPORT INFORMATION
  Report Type: 
  Country: None (occurrence: None)
  Receive Date: 20070614
  Receipt Date: 20070427
  Transmission Date: 20071010
  Serious: No
  Sender: FDA-Public Use
  Company Number: EDI-009474

PATIENT
  Age: 21 Year
  Sex: Male

DRUGS (2)
  1. MULTIHANCE [Suspect]
     Indication: LYMPHADENOPATHY
     Dosage: 10 ML ONCE IV
     Route: 042
     Dates: start: 20070427, end: 20070427
  2. MULTIHANCE [Suspect]
     Indication: NUCLEAR MAGNETIC RESONANCE IMAGING
     Dosage: 10 ML ONCE IV
     Route: 042
     Dates: start: 20070427, end: 20070427

REACTIONS (5)
  - CHEST PAIN [None]
  - DISORIENTATION [None]
  - DIZZINESS [None]
  - ERYTHEMA [None]
  - PARAESTHESIA [None]
